FAERS Safety Report 14505599 (Version 1)
Quarter: 2018Q1

REPORT INFORMATION
  Report Type: Spontaneous
  Country: US (occurrence: US)
  Receive Date: 20180207
  Receipt Date: 20180207
  Transmission Date: 20180509
  Serious: Yes (Other)
  Sender: FDA-Public Use
  Company Number: None

PATIENT

DRUGS (2)
  1. AMLODIPINE [Suspect]
     Active Substance: AMLODIPINE BESYLATE
  2. DIVALPROEX [Suspect]
     Active Substance: DIVALPROEX SODIUM

REACTIONS (3)
  - Fall [None]
  - Head injury [None]
  - Joint injury [None]
